FAERS Safety Report 21748347 (Version 6)
Quarter: 2025Q1

REPORT INFORMATION
  Report Type: Spontaneous
  Country: US (occurrence: US)
  Receive Date: 20221219
  Receipt Date: 20250103
  Transmission Date: 20250408
  Serious: Yes (Other)
  Sender: PFIZER
  Company Number: US-PFIZER INC-PV202200126917

PATIENT
  Age: 66 Year
  Sex: Male

DRUGS (2)
  1. INLYTA [Suspect]
     Active Substance: AXITINIB
     Indication: Metastatic renal cell carcinoma
     Dates: start: 20221215
  2. INLYTA [Suspect]
     Active Substance: AXITINIB
     Dosage: 5 MG, 2X/DAY (WITH PLENTY OF WATER)
     Route: 048

REACTIONS (12)
  - Nephrectomy [Unknown]
  - Hyperaesthesia [Unknown]
  - Skin atrophy [Unknown]
  - Headache [Unknown]
  - Oral mucosal blistering [Unknown]
  - Fatigue [Unknown]
  - Dysphonia [Unknown]
  - Stomatitis [Recovered/Resolved]
  - Skin lesion [Recovered/Resolved]
  - Abdominal pain upper [Unknown]
  - Aphonia [Unknown]
  - Skin disorder [Unknown]

NARRATIVE: CASE EVENT DATE: 20221201
